FAERS Safety Report 26040695 (Version 2)
Quarter: 2025Q4

REPORT INFORMATION
  Report Type: Spontaneous
  Country: EU (occurrence: EU)
  Receive Date: 20251113
  Receipt Date: 20251128
  Transmission Date: 20260118
  Serious: Yes (Death, Other)
  Sender: AMGEN
  Company Number: EU-AMGEN-DEUSP2025223170

PATIENT

DRUGS (3)
  1. PROLIA [Suspect]
     Active Substance: DENOSUMAB
     Indication: Osteoporosis postmenopausal
     Dosage: 60 MILLIGRAM, Q6MO INTO THE THIGH, ABDOMEN, OR UPPER ARM
     Route: 058
  2. CALCIUM [Concomitant]
     Active Substance: CALCIUM
     Dosage: 1 GRAM, QD
  3. VITAMIN D [Concomitant]
     Active Substance: VITAMIN D NOS
     Dosage: 800 INTERNATIONAL UNIT, QD

REACTIONS (14)
  - Adverse event [Fatal]
  - Spinal fracture [Unknown]
  - Fracture [Unknown]
  - Pathological fracture [Unknown]
  - Drug specific antibody present [Unknown]
  - Hypocalcaemia [Unknown]
  - COVID-19 [Unknown]
  - Nasopharyngitis [Unknown]
  - Upper respiratory tract infection [Unknown]
  - Headache [Unknown]
  - Arthralgia [Unknown]
  - Hypertension [Unknown]
  - Infestation [Unknown]
  - Infection [Unknown]
